FAERS Safety Report 11093716 (Version 1)
Quarter: 2015Q2

REPORT INFORMATION
  Report Type: Spontaneous
  Country: US (occurrence: US)
  Receive Date: 20150506
  Receipt Date: 20150506
  Transmission Date: 20150821
  Serious: Yes (Hospitalization)
  Sender: FDA-Public Use
  Company Number: US-SA-2015SA057603

PATIENT
  Age: 83 Year
  Sex: Male
  Weight: 87 kg

DRUGS (9)
  1. HYDRALAZINE [Suspect]
     Active Substance: HYDRALAZINE HYDROCHLORIDE
     Route: 065
  2. ENZALUTAMIDE [Suspect]
     Active Substance: ENZALUTAMIDE
     Indication: PROSTATE CANCER METASTATIC
     Route: 065
     Dates: start: 20150113
  3. ABIRATERONE ACETATE [Suspect]
     Active Substance: ABIRATERONE ACETATE
     Indication: PROSTATE CANCER METASTATIC
     Route: 065
     Dates: start: 20150113
  4. DILTIAZEM [Suspect]
     Active Substance: DILTIAZEM
     Route: 065
  5. ISOSORBIDE [Suspect]
     Active Substance: ISOSORBIDE
     Route: 065
  6. AMIODARONE [Suspect]
     Active Substance: AMIODARONE
     Route: 065
  7. LASIX [Suspect]
     Active Substance: FUROSEMIDE
     Route: 065
  8. AMLODIPINE [Suspect]
     Active Substance: AMLODIPINE BESYLATE
     Route: 065
  9. PREDNISONE. [Suspect]
     Active Substance: PREDNISONE
     Indication: PROSTATE CANCER METASTATIC
     Route: 065
     Dates: start: 20150113

REACTIONS (3)
  - Pulmonary oedema [Recovering/Resolving]
  - Pleural effusion [Recovering/Resolving]
  - Cardiac failure [Recovering/Resolving]

NARRATIVE: CASE EVENT DATE: 20150116
